FAERS Safety Report 18940336 (Version 1)
Quarter: 2021Q1

REPORT INFORMATION
  Report Type: Spontaneous
  Country: DE (occurrence: DE)
  Receive Date: 20210225
  Receipt Date: 20210225
  Transmission Date: 20210420
  Serious: Yes (Death, Other)
  Sender: FDA-Public Use
  Company Number: DE-SA-2021SA054404

PATIENT
  Age: 77 Year
  Sex: Male

DRUGS (5)
  1. METOPROLOL XL SANDOZ [Concomitant]
     Active Substance: METOPROLOL SUCCINATE
     Dosage: UNK (6:30 P.M.)
  2. MARCUMAR [Concomitant]
     Active Substance: PHENPROCOUMON
     Dosage: UNK
  3. TARGIN [Concomitant]
     Active Substance: NALOXONE HYDROCHLORIDE\OXYCODONE HYDROCHLORIDE
     Dosage: 6:30 P.M.
  4. LANTUS SOLOSTAR [Suspect]
     Active Substance: INSULIN GLARGINE
     Indication: DIABETES MELLITUS
     Dosage: FOR 6 YEARS, AT 10 P.M.
     Route: 058
     Dates: start: 2015
  5. PREGABALIN. [Concomitant]
     Active Substance: PREGABALIN
     Dosage: UNK (6:30 P.M.)

REACTIONS (2)
  - Death [Fatal]
  - Hypoglycaemia [Recovered/Resolved]

NARRATIVE: CASE EVENT DATE: 20201229
